FAERS Safety Report 7523916-6 (Version None)
Quarter: 2011Q2

REPORT INFORMATION
  Report Type: 
  Country: None (occurrence: None)
  Receive Date: 20110603
  Receipt Date: 20110520
  Transmission Date: 20111010
  Serious: Yes (Death)
  Sender: FDA-Public Use
  Company Number: GB-GENENTECH-318768

PATIENT
  Sex: Female

DRUGS (9)
  1. GABAPENTIN [Concomitant]
  2. ASPIRIN [Concomitant]
  3. QUINAPRIL HCL [Concomitant]
  4. VENTOLIN DS [Concomitant]
  5. VERAPAMIL HCL [Concomitant]
  6. LUCENTIS [Suspect]
     Indication: PRODUCT USED FOR UNKNOWN INDICATION
     Dosage: UNK
     Dates: start: 20090801
  7. ACETAMINOPHEN AND CODEINE PHOSPHATE [Concomitant]
  8. MIRTAZAPINE [Concomitant]
  9. OMEPRAZOLE [Concomitant]

REACTIONS (2)
  - MYOCARDIAL INFARCTION [None]
  - DEATH [None]
